FAERS Safety Report 8737954 (Version 4)
Quarter: 2012Q4

REPORT INFORMATION
  Report Type: 
  Country: US (occurrence: US)
  Receive Date: 20120823
  Receipt Date: 20120920
  Transmission Date: 20130627
  Serious: Yes (Life-Threatening, Hospitalization)
  Sender: FDA-Public Use
  Company Number: US-MERCK-1208USA005703

PATIENT
  Age: 72 Year
  Sex: Female
  Weight: 56.4 kg

DRUGS (18)
  1. VORINOSTAT [Suspect]
     Indication: DIFFUSE LARGE B-CELL LYMPHOMA
     Dosage: 400 mg, qd, on days 1-5
     Route: 048
     Dates: start: 20120723, end: 20120727
  2. VORINOSTAT [Suspect]
     Dosage: 300 mg, qd, on days 1-5
     Route: 048
     Dates: start: 20120813
  3. VORINOSTAT [Suspect]
     Dosage: 200 mg, qd, on days 1-5
     Route: 048
     Dates: start: 20120903, end: 20120907
  4. RITUXIMAB [Suspect]
     Indication: DIFFUSE LARGE B-CELL LYMPHOMA
     Dosage: 375 mg/m2, Once, on day 3
     Route: 042
     Dates: start: 20120725, end: 20120725
  5. RITUXIMAB [Suspect]
     Dosage: 375 mg/m2, Once, on day 3
     Route: 042
     Dates: start: 20120815, end: 20120815
  6. RITUXIMAB [Suspect]
     Dosage: 375 mg/m2, Once, on day 3
     Route: 042
     Dates: start: 20120905, end: 20120905
  7. CYCLOPHOSPHAMIDE [Suspect]
     Indication: DIFFUSE LARGE B-CELL LYMPHOMA
     Dosage: 750 mg/m2, Once, on day 3
     Route: 042
     Dates: start: 20120725, end: 20120725
  8. CYCLOPHOSPHAMIDE [Suspect]
     Dosage: 750 mg/m2, Once, on day 3
     Route: 042
     Dates: start: 20120815, end: 20120815
  9. CYCLOPHOSPHAMIDE [Suspect]
     Dosage: 750 mg/m2, Once, on day 3
     Route: 042
     Dates: start: 20120905, end: 20120905
  10. DOXORUBICIN [Suspect]
     Indication: DIFFUSE LARGE B-CELL LYMPHOMA
     Dosage: 80 mg/m2, Once, on day 3
     Route: 042
     Dates: start: 20120725, end: 20120725
  11. DOXORUBICIN [Suspect]
     Dosage: 80 mg/m2, Once, on day 3
     Route: 042
     Dates: start: 20120815, end: 20120815
  12. DOXORUBICIN [Suspect]
     Dosage: 80 mg/m2, Once, on day 3
     Route: 042
     Dates: start: 20120905, end: 20120905
  13. VINCRISTINE SULFATE [Suspect]
     Indication: DIFFUSE LARGE B-CELL LYMPHOMA
     Dosage: 1.4 mg, Once
     Route: 042
     Dates: start: 20120725, end: 20120725
  14. VINCRISTINE SULFATE [Suspect]
     Dosage: 1.4 mg, Once
     Route: 042
     Dates: start: 20120815, end: 20120815
  15. VINCRISTINE SULFATE [Suspect]
     Dosage: 1.4 mg, Once
     Route: 042
     Dates: start: 20120905, end: 20120905
  16. PREDNISONE [Suspect]
     Indication: DIFFUSE LARGE B-CELL LYMPHOMA
     Dosage: 100 mg, qd, on days 3-7
     Route: 048
     Dates: start: 20120725, end: 20120729
  17. PREDNISONE [Suspect]
     Dosage: 100 mg, qd, on days 3-7
     Route: 048
     Dates: start: 20120815, end: 20120819
  18. PREDNISONE [Suspect]
     Dosage: 100 mg, qd, on days 3-7
     Route: 048
     Dates: start: 20120905, end: 20120909

REACTIONS (10)
  - Posterior reversible encephalopathy syndrome [Recovered/Resolved]
  - Neutrophil count decreased [Recovered/Resolved]
  - Sepsis [Recovered/Resolved]
  - Confusional state [Recovered/Resolved]
  - White blood cell count decreased [Recovered/Resolved]
  - Platelet count decreased [Recovered/Resolved]
  - White blood cell count decreased [Recovered/Resolved]
  - Platelet count decreased [Recovered/Resolved]
  - Neutrophil count decreased [Recovered/Resolved]
  - Lymphocyte count decreased [Recovered/Resolved]
